FAERS Safety Report 16480312 (Version 3)
Quarter: 2019Q4

REPORT INFORMATION
  Report Type: Spontaneous
  Country: US (occurrence: US)
  Receive Date: 20190626
  Receipt Date: 20191213
  Transmission Date: 20200122
  Serious: No
  Sender: FDA-Public Use
  Company Number: US-PFIZER INC-2019273653

PATIENT
  Age: 60 Year
  Sex: Female

DRUGS (1)
  1. XELJANZ [Suspect]
     Active Substance: TOFACITINIB CITRATE
     Dosage: 5 MG, UNK
     Dates: start: 201903

REACTIONS (8)
  - Sensitivity to weather change [Unknown]
  - Dysphagia [Not Recovered/Not Resolved]
  - Rash [Unknown]
  - Nasopharyngitis [Unknown]
  - Arthralgia [Unknown]
  - Swollen tongue [Recovered/Resolved]
  - Dry mouth [Not Recovered/Not Resolved]
  - Sciatica [Unknown]

NARRATIVE: CASE EVENT DATE: 2019
